FAERS Safety Report 13025141 (Version 1)
Quarter: 2016Q4

REPORT INFORMATION
  Report Type: Other
  Country: JP (occurrence: JP)
  Receive Date: 20161214
  Receipt Date: 20161214
  Transmission Date: 20170207
  Serious: No
  Sender: FDA-Public Use
  Company Number: JP-NOVEL LABORATORIES, INC-2016-05114

PATIENT
  Age: 67 Year
  Sex: Male

DRUGS (5)
  1. VORICONAZOLE. [Suspect]
     Active Substance: VORICONAZOLE
     Indication: BRONCHOPULMONARY ASPERGILLOSIS
     Dosage: LOADING DOSE 600 MG
     Route: 048
  2. CYCLOSPORIN-A [Interacting]
     Active Substance: CYCLOSPORINE
     Dosage: 50 MG
     Route: 065
  3. CYCLOSPORIN-A [Interacting]
     Active Substance: CYCLOSPORINE
     Indication: BRONCHOPULMONARY ASPERGILLOSIS
     Dosage: 100 MG
     Route: 065
  4. CYCLOSPORIN-A [Interacting]
     Active Substance: CYCLOSPORINE
     Indication: INTERSTITIAL LUNG DISEASE
     Dosage: 75 MG
     Route: 065
  5. VORICONAZOLE. [Interacting]
     Active Substance: VORICONAZOLE
     Indication: INTERSTITIAL LUNG DISEASE
     Dosage: A MAINTENANCE DOSE OF 400 MG
     Route: 048

REACTIONS (2)
  - Drug interaction [Unknown]
  - Drug level increased [Unknown]
